FAERS Safety Report 15109781 (Version 1)
Quarter: 2018Q3

REPORT INFORMATION
  Report Type: Spontaneous
  Country: FR (occurrence: FR)
  Receive Date: 20180705
  Receipt Date: 20180705
  Transmission Date: 20181010
  Serious: Yes (Hospitalization)
  Sender: FDA-Public Use
  Company Number: FR-KRKA, D.D., NOVO MESTO-2051440

PATIENT
  Age: 45 Year
  Sex: Male
  Weight: 47 kg

DRUGS (6)
  1. SERESTA [Suspect]
     Active Substance: OXAZEPAM
     Route: 048
  2. LOVENOX [Suspect]
     Active Substance: ENOXAPARIN SODIUM
     Route: 058
  3. LANSOPRAZOLE. [Suspect]
     Active Substance: LANSOPRAZOLE
     Indication: PROPHYLAXIS AGAINST GASTROINTESTINAL ULCER
     Route: 048
     Dates: start: 2018
  4. ALIMTA [Suspect]
     Active Substance: PEMETREXED DISODIUM
     Route: 041
  5. NIVESTIM [Suspect]
     Active Substance: FILGRASTIM
     Route: 058
  6. KETAMINE HYDROCHLORIDE. [Suspect]
     Active Substance: KETAMINE HYDROCHLORIDE
     Route: 048

REACTIONS (2)
  - Cholestasis [Not Recovered/Not Resolved]
  - Hepatocellular injury [Not Recovered/Not Resolved]

NARRATIVE: CASE EVENT DATE: 201802
